FAERS Safety Report 15507601 (Version 2)
Quarter: 2019Q2

REPORT INFORMATION
  Report Type: Report from Study
  Country: US (occurrence: US)
  Receive Date: 20181016
  Receipt Date: 20190610
  Transmission Date: 20190711
  Serious: Yes (Hospitalization)
  Sender: FDA-Public Use
  Company Number: US-REGENERON PHARMACEUTICALS, INC.-2018-40116

PATIENT

DRUGS (13)
  1. INO-5401 [Suspect]
     Active Substance: INVESTIGATIONAL PRODUCT
     Indication: GLIOBLASTOMA
     Dosage: EVERY 3 WEEKS TIMES 4 DOSE, THEN EVERY 9 WEEKS UNTIL DISEASE PROGRESSION (10 MG)
     Route: 030
     Dates: start: 20180830, end: 20180830
  2. TEMOZOLOMIDE. [Suspect]
     Active Substance: TEMOZOLOMIDE
     Dosage: UNK
     Dates: start: 20180927
  3. INO-9012 [Suspect]
     Active Substance: INVESTIGATIONAL PRODUCT
     Dosage: EVERY 3 WEEKS TIMES 4 DOSE, THEN EVERY 9 WEEKS UNTIL DISEASE PROGRESSION (10 MG)
     Route: 030
     Dates: start: 20180919
  4. LEVETIRACETAM. [Concomitant]
     Active Substance: LEVETIRACETAM
     Indication: PROPHYLAXIS
     Dosage: 1000 MG (500 MG, 2 IN 1 DAY)
     Route: 048
     Dates: start: 2018
  5. LEVOTHYROXINE. [Concomitant]
     Active Substance: LEVOTHYROXINE
     Indication: HYPOTHYROIDISM
     Dosage: 50 ?G, SINGLE
     Route: 048
  6. MELATONIN [Concomitant]
     Active Substance: MELATONIN
     Indication: INSOMNIA
     Dosage: 5 MG, SINGLE
     Route: 048
     Dates: start: 20180919
  7. CEMIPLIMAB [Suspect]
     Active Substance: CEMIPLIMAB
     Indication: GLIOBLASTOMA
     Dosage: 350 MG, EVERY 3 WEEKS UNTIL DISEASE PROGRESSION
     Route: 042
     Dates: start: 20180830, end: 20180830
  8. INO-9012 [Suspect]
     Active Substance: INVESTIGATIONAL PRODUCT
     Indication: GLIOBLASTOMA
     Dosage: EVERY 3 WEEKS TIMES 4 DOSE, THEN EVERY 9 WEEKS UNTIL DISEASE PROGRESSION (10 MG)
     Route: 030
     Dates: start: 20180830, end: 20180830
  9. CEMIPLIMAB [Suspect]
     Active Substance: CEMIPLIMAB
     Dosage: 350 MG, EVERY 3 WEEKS UNTIL DISEASE PROGRESSION
     Route: 042
     Dates: start: 20180919
  10. INO-5401 [Suspect]
     Active Substance: INVESTIGATIONAL PRODUCT
     Dosage: EVERY 3 WEEKS TIMES 4 DOSE, THEN EVERY 9 WEEKS UNTIL DISEASE PROGRESSION (10 MG)
     Route: 030
     Dates: start: 20180919
  11. TEMOZOLOMIDE. [Suspect]
     Active Substance: TEMOZOLOMIDE
     Indication: GLIOBLASTOMA
     Dosage: UNK
     Dates: start: 20180910, end: 20180910
  12. ONDANSETRON [Concomitant]
     Active Substance: ONDANSETRON
     Indication: PROPHYLAXIS OF NAUSEA AND VOMITING
     Dosage: 8 MG, AS NECESSARY
     Route: 048
  13. SULFAMETHOXAZOLE AND TRIMETHOPRIM [Concomitant]
     Active Substance: SULFAMETHOXAZOLE\TRIMETHOPRIM
     Indication: PROPHYLAXIS
     Dosage: 800-160MG: EVERY MONDAY, WEDNESDAY, FRIDAY
     Route: 048
     Dates: start: 20180910

REACTIONS (5)
  - Influenza like illness [Recovered/Resolved]
  - Pyrexia [Recovered/Resolved]
  - Acute kidney injury [Recovering/Resolving]
  - Headache [Recovered/Resolved]
  - Haematuria [Recovered/Resolved]

NARRATIVE: CASE EVENT DATE: 20180918
